FAERS Safety Report 19053790 (Version 2)
Quarter: 2021Q2

REPORT INFORMATION
  Report Type: Spontaneous
  Country: JP (occurrence: JP)
  Receive Date: 20210324
  Receipt Date: 20210426
  Transmission Date: 20210717
  Serious: Yes (Other)
  Sender: FDA-Public Use
  Company Number: NVSJ2021JP004353

PATIENT
  Age: 31 Year
  Sex: Female

DRUGS (1)
  1. CYCLOSPORINE. [Suspect]
     Active Substance: CYCLOSPORINE
     Indication: CHRONIC SPONTANEOUS URTICARIA
     Dosage: 125 MG (2.3 MG/KG)
     Route: 065

REACTIONS (4)
  - Product use in unapproved indication [Unknown]
  - Palpitations [Unknown]
  - Hyperthyroidism [Unknown]
  - Abdominal pain [Unknown]
